FAERS Safety Report 24626772 (Version 2)
Quarter: 2024Q4

REPORT INFORMATION
  Report Type: Spontaneous
  Country: US (occurrence: US)
  Receive Date: 20241115
  Receipt Date: 20241122
  Transmission Date: 20250114
  Serious: No
  Sender: NOVO NORDISK
  Company Number: US-NOVOPROD-1284549

PATIENT
  Age: 80 Year
  Sex: Female

DRUGS (5)
  1. TRESIBA [Suspect]
     Active Substance: INSULIN DEGLUDEC
     Indication: Type 2 diabetes mellitus
     Dosage: 8 IU
     Route: 058
  2. NOVOLOG [Suspect]
     Active Substance: INSULIN ASPART
     Indication: Type 2 diabetes mellitus
     Dosage: 3 TIMES IN A DAY
     Route: 058
  3. OZEMPIC [Suspect]
     Active Substance: SEMAGLUTIDE
     Indication: Type 2 diabetes mellitus
     Dosage: 0.25 MG, QW
     Route: 058
     Dates: end: 20240319
  4. OZEMPIC [Suspect]
     Active Substance: SEMAGLUTIDE
     Dosage: 0.25 MG, QW
     Route: 058
     Dates: start: 20240808
  5. METFORMIN [Concomitant]
     Active Substance: METFORMIN HYDROCHLORIDE
     Indication: Blood glucose abnormal
     Dosage: UNK

REACTIONS (6)
  - Bone density decreased [Unknown]
  - Hypertension [Not Recovered/Not Resolved]
  - Osteoporosis [Not Recovered/Not Resolved]
  - Weight decreased [Unknown]
  - Blood glucose increased [Unknown]
  - Therapeutic product effect delayed [Not Recovered/Not Resolved]

NARRATIVE: CASE EVENT DATE: 20240319
